FAERS Safety Report 25138965 (Version 1)
Quarter: 2025Q1

REPORT INFORMATION
  Report Type: Spontaneous
  Country: US (occurrence: US)
  Receive Date: 20250331
  Receipt Date: 20250331
  Transmission Date: 20250408
  Serious: No
  Sender: ALKEM
  Company Number: US-ALKEM LABORATORIES LIMITED-US-ALKEM-2025-02847

PATIENT
  Age: 31 Year
  Sex: Female

DRUGS (4)
  1. LURASIDONE [Suspect]
     Active Substance: LURASIDONE
     Indication: Major depression
     Dosage: 120 MILLIGRAM, QD
     Route: 065
  2. LURASIDONE [Suspect]
     Active Substance: LURASIDONE
     Indication: Attention deficit hyperactivity disorder
  3. LURASIDONE [Suspect]
     Active Substance: LURASIDONE
     Indication: Developmental delay
  4. LURASIDONE [Suspect]
     Active Substance: LURASIDONE
     Indication: Epilepsy

REACTIONS (2)
  - Rabbit syndrome [Unknown]
  - Parkinsonism [Unknown]
